FAERS Safety Report 6256340-7 (Version None)
Quarter: 2009Q3

REPORT INFORMATION
  Report Type: 
  Country: None (occurrence: None)
  Receive Date: 20090706
  Receipt Date: 20090629
  Transmission Date: 20100115
  Serious: No
  Sender: FDA-Public Use
  Company Number: US-ROCHE-612119

PATIENT
  Sex: Female
  Weight: 46.7 kg

DRUGS (2)
  1. ISOTRETINOIN [Suspect]
     Route: 048
     Dates: start: 20090119, end: 20090206
  2. BIRTH CONTROL PILL [Concomitant]
     Indication: CONTRACEPTION
     Dosage: FORM: PILLS
     Dates: end: 20090130

REACTIONS (2)
  - NO ADVERSE EVENT [None]
  - PREGNANCY [None]
